FAERS Safety Report 24991964 (Version 1)
Quarter: 2025Q1

REPORT INFORMATION
  Report Type: Spontaneous
  Country: CN (occurrence: CN)
  Receive Date: 20250220
  Receipt Date: 20250220
  Transmission Date: 20250409
  Serious: Yes (Hospitalization)
  Sender: NOVARTIS
  Company Number: CN-002147023-NVSC2025CN026121

PATIENT
  Age: 34 Year
  Sex: Female
  Weight: 52 kg

DRUGS (6)
  1. CYCLOSPORINE [Suspect]
     Active Substance: CYCLOSPORINE
     Indication: Lymphoma
     Dosage: 75 MG, BID (ROUTE: PUMP INJECTION)
     Route: 065
     Dates: start: 20250118, end: 20250121
  2. CYCLOSPORINE [Suspect]
     Active Substance: CYCLOSPORINE
     Indication: Symptomatic treatment
     Dosage: 86.25 MG, BID (ROUTE: PUMP INJECTION)
     Route: 065
     Dates: start: 20250121, end: 20250126
  3. MELPHALAN [Concomitant]
     Active Substance: MELPHALAN
     Indication: Lymphoma
     Dosage: 92.4 MG, QD
     Route: 041
     Dates: start: 20250117, end: 20250118
  4. MELPHALAN [Concomitant]
     Active Substance: MELPHALAN
     Indication: Chemotherapy
     Dosage: 50 MG, QD
     Route: 041
     Dates: start: 20250117, end: 20250118
  5. SODIUM CHLORIDE [Concomitant]
     Active Substance: SODIUM CHLORIDE
     Indication: Chemotherapy
     Dosage: 200 ML, QD
     Route: 041
     Dates: start: 20250117, end: 20250118
  6. SODIUM CHLORIDE [Concomitant]
     Active Substance: SODIUM CHLORIDE
     Indication: Symptomatic treatment
     Dosage: 50 ML, QD
     Route: 041
     Dates: start: 20250118, end: 20250121

REACTIONS (2)
  - Drug-induced liver injury [Recovering/Resolving]
  - Hepatic function abnormal [Recovering/Resolving]

NARRATIVE: CASE EVENT DATE: 20250120
